FAERS Safety Report 8028458-X (Version None)
Quarter: 2012Q1

REPORT INFORMATION
  Report Type: 
  Country: None (occurrence: None)
  Receive Date: 20120106
  Receipt Date: 20120103
  Transmission Date: 20120608
  Serious: Yes (Hospitalization)
  Sender: FDA-Public Use
  Company Number: DE-ABBOTT-11P-062-0879088-00

PATIENT
  Sex: Female
  Weight: 66 kg

DRUGS (3)
  1. ETORICOXIB [Concomitant]
     Indication: RHEUMATOID ARTHRITIS
  2. PREDNISOLONE [Concomitant]
     Indication: RHEUMATOID ARTHRITIS
  3. HUMIRA [Suspect]
     Indication: RHEUMATOID ARTHRITIS
     Dosage: EOW
     Route: 058
     Dates: start: 20110809, end: 20111129

REACTIONS (1)
  - BREAST CANCER [None]
